FAERS Safety Report 15247339 (Version 1)
Quarter: 2018Q3

REPORT INFORMATION
  Report Type: Other
  Country: US (occurrence: US)
  Receive Date: 20180807
  Receipt Date: 20180807
  Transmission Date: 20181010
  Serious: Yes (Life-Threatening, Hospitalization)
  Sender: FDA-Public Use
  Company Number: US-ALLIED PHARMA, LLC-2053361

PATIENT
  Age: 25 Year
  Sex: Male

DRUGS (2)
  1. TRAMADOL. [Suspect]
     Active Substance: TRAMADOL
     Route: 065
  2. CLARITHROMYCIN. [Suspect]
     Active Substance: CLARITHROMYCIN
     Indication: PRODUCT USED FOR UNKNOWN INDICATION
     Route: 065

REACTIONS (4)
  - Stevens-Johnson syndrome [Recovering/Resolving]
  - Pneumothorax [Unknown]
  - Pneumonia aspiration [Unknown]
  - Pneumomediastinum [Recovered/Resolved]
